FAERS Safety Report 6570613-X (Version None)
Quarter: 2010Q1

REPORT INFORMATION
  Report Type: 
  Country: None (occurrence: None)
  Receive Date: 20100125
  Receipt Date: 20091119
  Transmission Date: 20100710
  Serious: Yes (Hospitalization)
  Sender: FDA-Public Use
  Company Number: 2009BI036797

PATIENT
  Age: 50 Year
  Sex: Female
  Weight: 61.6892 kg

DRUGS (7)
  1. TYSABRI [Suspect]
     Indication: MULTIPLE SCLEROSIS
     Dosage: 300 MG;QM;IV
     Route: 042
     Dates: start: 20071018
  2. VITAMIN D3 [Concomitant]
  3. MULTI-VITAMIN [Concomitant]
  4. REBIF [Concomitant]
  5. AVONEX [Concomitant]
  6. COPAXONE [Concomitant]
  7. BETASERON [Concomitant]

REACTIONS (7)
  - ALOPECIA [None]
  - CONSTIPATION [None]
  - DEPRESSED MOOD [None]
  - FATIGUE [None]
  - MULTIPLE SCLEROSIS RELAPSE [None]
  - STRESS URINARY INCONTINENCE [None]
  - TRICHORRHEXIS [None]
